FAERS Safety Report 7118869-9 (Version None)
Quarter: 2010Q4

REPORT INFORMATION
  Report Type: 
  Country: None (occurrence: None)
  Receive Date: 20101123
  Receipt Date: 20101115
  Transmission Date: 20110411
  Serious: Yes (Hospitalization)
  Sender: FDA-Public Use
  Company Number: DE-ROCHE-618571

PATIENT
  Age: 83 Year
  Sex: Male
  Weight: 76 kg

DRUGS (10)
  1. TORASEMIDE [Suspect]
     Route: 048
     Dates: start: 20060201, end: 20080305
  2. XIPAMID [Suspect]
     Route: 048
     Dates: start: 20060201, end: 20080305
  3. XIPAMID [Suspect]
     Route: 048
     Dates: start: 20080311
  4. FUROSEMIDE [Suspect]
     Route: 048
  5. SPIRONOLACTONE [Suspect]
     Route: 048
     Dates: start: 20060201
  6. DIGITOXIN [Concomitant]
     Route: 048
     Dates: start: 20040101
  7. RAMIPRIL [Concomitant]
     Route: 048
     Dates: start: 20000101
  8. FALITHROM [Concomitant]
     Indication: ATRIAL FIBRILLATION
     Dosage: DRUG REPORTED AS ' FALITHROM ^HEXAL^ '
     Route: 048
     Dates: start: 20040101, end: 20080305
  9. ACTRAPID [Concomitant]
     Indication: TYPE 2 DIABETES MELLITUS
     Dosage: DOSE  -  14-0-18 IU
     Route: 058
     Dates: start: 20060101
  10. PENTAERYTHRITOL TETRANITRATE [Concomitant]
     Indication: ANGINA PECTORIS
     Route: 048

REACTIONS (3)
  - DEHYDRATION [None]
  - SYNCOPE [None]
  - VERTIGO [None]
